FAERS Safety Report 18267172 (Version 1)
Quarter: 2020Q3

REPORT INFORMATION
  Report Type: Spontaneous
  Country: US (occurrence: US)
  Receive Date: 20200915
  Receipt Date: 20200915
  Transmission Date: 20201103
  Serious: Yes (Other)
  Sender: FDA-Public Use
  Company Number: US-EPIC PHARMA LLC-2020EPC00269

PATIENT
  Age: 67 Year
  Sex: Male

DRUGS (1)
  1. ZONISAMIDE. [Suspect]
     Active Substance: ZONISAMIDE
     Indication: ESSENTIAL TREMOR
     Dosage: 100 MG, 1X/DAY
     Route: 065

REACTIONS (1)
  - Choroidal effusion [Recovered/Resolved]
